FAERS Safety Report 19314055 (Version 1)
Quarter: 2021Q2

REPORT INFORMATION
  Report Type: Spontaneous
  Country: TN (occurrence: TN)
  Receive Date: 20210527
  Receipt Date: 20210527
  Transmission Date: 20210717
  Serious: Yes (Hospitalization, Other)
  Sender: FDA-Public Use
  Company Number: TN-ACCORD-225825

PATIENT
  Age: 23 Year
  Sex: Male

DRUGS (6)
  1. PREDNISONE. [Suspect]
     Active Substance: PREDNISONE
     Indication: SYSTEMIC LUPUS ERYTHEMATOSUS
     Dosage: 1 MG/KG
     Dates: start: 2015
  2. PREDNISONE. [Suspect]
     Active Substance: PREDNISONE
     Indication: SYSTEMIC LUPUS ERYTHEMATOSUS
     Dates: start: 2015
  3. MYCOPHENOLATE MOFETIL. [Suspect]
     Active Substance: MYCOPHENOLATE MOFETIL
     Indication: ANTIPHOSPHOLIPID SYNDROME
     Dates: start: 2015
  4. MYCOPHENOLATE MOFETIL. [Suspect]
     Active Substance: MYCOPHENOLATE MOFETIL
     Indication: SYSTEMIC LUPUS ERYTHEMATOSUS
  5. MYCOPHENOLIC ACID. [Suspect]
     Active Substance: MYCOPHENOLIC ACID
     Indication: SYSTEMIC LUPUS ERYTHEMATOSUS
     Dosage: 3 G
     Dates: start: 2015
  6. PREDNISONE. [Suspect]
     Active Substance: PREDNISONE
     Indication: ANTIPHOSPHOLIPID SYNDROME

REACTIONS (3)
  - Off label use [Unknown]
  - Osteonecrosis [Recovered/Resolved]
  - Osteomyelitis salmonella [Recovered/Resolved]

NARRATIVE: CASE EVENT DATE: 201903
